FAERS Safety Report 5241781-7 (Version None)
Quarter: 2007Q1

REPORT INFORMATION
  Report Type: 
  Country: None (occurrence: None)
  Receive Date: 20070220
  Receipt Date: 20070207
  Transmission Date: 20070707
  Serious: Yes (Hospitalization)
  Sender: FDA-Public Use
  Company Number: FR-SANOFI-SYNTHELABO-A02200700409

PATIENT
  Age: 78 Year
  Sex: Male

DRUGS (8)
  1. ZAMUDOL [Concomitant]
     Indication: OSTEOARTHRITIS
     Dosage: 400 MG
     Route: 048
     Dates: end: 20060921
  2. MYOLASTAN [Concomitant]
     Indication: OSTEOARTHRITIS
     Route: 048
  3. INSULATARD [Concomitant]
     Indication: DIABETES MELLITUS
     Route: 058
  4. FONZYLANE [Concomitant]
     Indication: PERIPHERAL ARTERIAL OCCLUSIVE DISEASE
     Route: 048
  5. LERCAN [Concomitant]
     Indication: HYPERTENSION
     Route: 048
     Dates: end: 20060921
  6. APROVEL [Concomitant]
     Indication: HYPERTENSION
     Route: 048
     Dates: end: 20060921
  7. PLAVIX [Suspect]
     Indication: PERIPHERAL ARTERIAL OCCLUSIVE DISEASE
     Route: 048
     Dates: end: 20060914
  8. ARIXTRA [Interacting]
     Indication: PHLEBITIS SUPERFICIAL
     Dosage: 7.5 MG
     Route: 058
     Dates: start: 20060914, end: 20060921

REACTIONS (3)
  - DRUG INTERACTION [None]
  - HAEMOGLOBIN DECREASED [None]
  - RECTAL HAEMORRHAGE [None]
